FAERS Safety Report 5601571-X (Version None)
Quarter: 2008Q1

REPORT INFORMATION
  Report Type: 
  Country: None (occurrence: None)
  Receive Date: 20080124
  Receipt Date: 20080116
  Transmission Date: 20080703
  Serious: Yes (Hospitalization)
  Sender: FDA-Public Use
  Company Number: US-ABBOTT-08P-163-0434109-00

PATIENT
  Age: 63 Year
  Sex: Female

DRUGS (2)
  1. HUMIRA [Suspect]
     Indication: RHEUMATOID ARTHRITIS
     Route: 058
  2. HUMIRA [Suspect]
     Dosage: HELD FOR SURGERY FOR 3 MONTHS
     Route: 058

REACTIONS (3)
  - BLADDER DISORDER [None]
  - GASTROINTESTINAL INFECTION [None]
  - UNDERDOSE [None]
